FAERS Safety Report 5567991-7 (Version None)
Quarter: 2007Q4

REPORT INFORMATION
  Report Type: 
  Country: None (occurrence: None)
  Receive Date: 20071218
  Receipt Date: 20071205
  Transmission Date: 20080405
  Serious: Yes (Other)
  Sender: FDA-Public Use
  Company Number: 310010M07USA

PATIENT
  Age: 26 Year
  Sex: Female

DRUGS (5)
  1. GONAL-F [Suspect]
     Indication: INFERTILITY
     Dates: start: 20071001
  2. OVIDREL [Suspect]
     Indication: INFERTILITY
     Dates: start: 20071001
  3. REPRONEX [Suspect]
     Dates: start: 20071001
  4. MENOPUR [Suspect]
     Dates: start: 20071001
  5. TESTOSTERONE [Suspect]

REACTIONS (2)
  - ABORTION SPONTANEOUS INCOMPLETE [None]
  - DRUG EXPOSURE DURING PREGNANCY [None]
